FAERS Safety Report 5591097-4 (Version None)
Quarter: 2008Q1

REPORT INFORMATION
  Report Type: 
  Country: None (occurrence: None)
  Receive Date: 20080115
  Receipt Date: 20080107
  Transmission Date: 20080703
  Serious: Yes (Other)
  Sender: FDA-Public Use
  Company Number: PHFR2008GB00469

PATIENT
  Age: 45 Year
  Sex: Male

DRUGS (11)
  1. DICLOFENAC [Suspect]
     Dosage: 75 MG
     Route: 042
     Dates: start: 20071214, end: 20071214
  2. CEFUROXIME [Concomitant]
     Route: 065
  3. FENTANYL [Concomitant]
     Route: 065
  4. GLYCOPYRROLATE [Concomitant]
     Route: 065
  5. METRONIDAZOLE [Concomitant]
     Route: 065
  6. MORPHINE [Concomitant]
     Route: 065
  7. NEOSTIGMINE [Concomitant]
     Route: 065
  8. ONDANSETRON [Concomitant]
     Route: 065
  9. PARACETAMOL [Concomitant]
     Route: 065
  10. SUXAMETHONIUM [Concomitant]
     Route: 065
  11. THIOPENTONE [Concomitant]
     Route: 065

REACTIONS (1)
  - SWOLLEN TONGUE [None]
